FAERS Safety Report 13787565 (Version 1)
Quarter: 2017Q3

REPORT INFORMATION
  Report Type: Spontaneous
  Country: US (occurrence: US)
  Receive Date: 20170725
  Receipt Date: 20170725
  Transmission Date: 20171127
  Serious: No
  Sender: FDA-Public Use
  Company Number: US-JNJFOC-20170701722

PATIENT
  Age: 88 Year
  Sex: Female
  Weight: 46.27 kg

DRUGS (1)
  1. TYLENOL REGULAR STRENGTH [Suspect]
     Active Substance: ACETAMINOPHEN
     Indication: ARTHRALGIA
     Dosage: ONCE
     Route: 048
     Dates: start: 20170702, end: 20170702

REACTIONS (5)
  - Incorrect dose administered [Unknown]
  - Choking sensation [Recovered/Resolved]
  - Product size issue [Unknown]
  - Dysphagia [Recovered/Resolved]
  - Regurgitation [Recovered/Resolved]

NARRATIVE: CASE EVENT DATE: 20170702
